FAERS Safety Report 6343627-2 (Version None)
Quarter: 2009Q3

REPORT INFORMATION
  Report Type: 
  Country: None (occurrence: None)
  Receive Date: 20090904
  Receipt Date: 20090904
  Transmission Date: 20100115
  Serious: Yes (Life-Threatening)
  Sender: FDA-Public Use
  Company Number: None

PATIENT
  Age: 63 Year
  Sex: Male
  Weight: 106.5953 kg

DRUGS (1)
  1. CYMBALTA [Suspect]
     Dosage: 60 MG 1 CAPSULE PER DAY 11-12-08 TILL GONE 30 TABLETS PLUS PILLS GIVEN AT CLINIC TO TRY
     Dates: start: 20081112

REACTIONS (2)
  - DEPRESSION [None]
  - SUICIDAL IDEATION [None]
